FAERS Safety Report 20863369 (Version 1)
Quarter: 2022Q2

REPORT INFORMATION
  Report Type: Spontaneous
  Country: US (occurrence: US)
  Receive Date: 20220523
  Receipt Date: 20220523
  Transmission Date: 20220721
  Serious: Yes (Other)
  Sender: FDA-Public Use
  Company Number: US-TEVA-2022-US-2038658

PATIENT

DRUGS (3)
  1. HYDROCODONE [Suspect]
     Active Substance: HYDROCODONE
     Route: 065
  2. OXYCODONE [Suspect]
     Active Substance: OXYCODONE
     Route: 065
  3. HEROIN [Suspect]
     Active Substance: DIAMORPHINE
     Route: 065

REACTIONS (2)
  - Hepatitis C [Unknown]
  - Drug dependence [Unknown]
